FAERS Safety Report 9894960 (Version 1)
Quarter: 2014Q1

REPORT INFORMATION
  Report Type: Spontaneous
  Country: US (occurrence: US)
  Receive Date: 20140213
  Receipt Date: 20140213
  Transmission Date: 20141002
  Serious: No
  Sender: FDA-Public Use
  Company Number: US-BRISTOL-MYERS SQUIBB COMPANY-17255266

PATIENT
  Age: 66 Year
  Sex: Female
  Weight: 51.25 kg

DRUGS (16)
  1. ABATACEPT SUBQ INJECTION 125MG/ML [Suspect]
     Dosage: 1DF= 125MG/ML
     Route: 058
  2. PREDNISONE [Concomitant]
     Dosage: TABS
  3. METHOTREXATE [Concomitant]
     Dosage: TABS
  4. FOLIC ACID [Concomitant]
     Dosage: TABS
  5. PREMARIN [Concomitant]
     Dosage: TABS
  6. SYNTHROID [Concomitant]
     Dosage: TABS
  7. VITAMIN B12 [Concomitant]
     Dosage: TABS
  8. VITAMIN B COMPLEX [Concomitant]
     Dosage: CAPS
  9. VITAMIN D3 [Concomitant]
     Dosage: CAPS?1DF= 1000UNITS
  10. COFFEE [Concomitant]
     Dosage: COFFEE BEAN CAPS
  11. NONI JUICE [Concomitant]
  12. MILK THISTLE [Concomitant]
     Dosage: CAPS
  13. LIDODERM [Concomitant]
     Dosage: DIS 5%
  14. TRIAMCINOLONE [Concomitant]
     Dosage: 1DF= 0.025%
     Route: 061
  15. TRAMADOL HCL + ACETAMINOPHEN [Concomitant]
     Dosage: TABS?1DF= 37.5-325
  16. INDERAL [Concomitant]
     Dosage: TABS

REACTIONS (1)
  - Nausea [Unknown]
